FAERS Safety Report 6264255-3 (Version None)
Quarter: 2009Q3

REPORT INFORMATION
  Report Type: 
  Country: None (occurrence: None)
  Receive Date: 20090706
  Receipt Date: 20081009
  Transmission Date: 20100115
  Serious: Yes (Other)
  Sender: FDA-Public Use
  Company Number: 590766

PATIENT
  Age: 55 Year
  Sex: Female

DRUGS (2)
  1. CELLCEPT [Suspect]
     Indication: PEMPHIGUS
     Dosage: 500 MG
  2. ZOLOFT [Suspect]
     Indication: ANXIETY
     Dates: start: 20071001

REACTIONS (6)
  - ANXIETY [None]
  - DIZZINESS [None]
  - EMOTIONAL DISORDER [None]
  - FEELING ABNORMAL [None]
  - GASTRITIS EROSIVE [None]
  - WEIGHT INCREASED [None]
